FAERS Safety Report 6854632-1 (Version None)
Quarter: 2010Q3

REPORT INFORMATION
  Report Type: 
  Country: None (occurrence: None)
  Receive Date: 20100717
  Receipt Date: 20080219
  Transmission Date: 20110219
  Serious: Yes (Other)
  Sender: FDA-Public Use
  Company Number: US-PFIZER INC-2008001304

PATIENT
  Sex: Male
  Weight: 195 kg

DRUGS (5)
  1. CHANTIX [Suspect]
     Indication: SMOKING CESSATION THERAPY
     Dates: start: 20071201
  2. LORTAB [Concomitant]
  3. MICARDIS [Concomitant]
     Indication: HYPERTENSION
  4. FUROSEMIDE [Concomitant]
  5. SPIRONOLACTONE [Concomitant]

REACTIONS (6)
  - ABNORMAL DREAMS [None]
  - COUGH [None]
  - HALLUCINATION [None]
  - RETCHING [None]
  - SOMNOLENCE [None]
  - WEIGHT INCREASED [None]
